FAERS Safety Report 9331993 (Version 1)
Quarter: 2013Q2

REPORT INFORMATION
  Report Type: Spontaneous
  Country: IT (occurrence: None)
  Receive Date: 20130603
  Receipt Date: 20130603
  Transmission Date: 20140414
  Serious: Yes (Hospitalization)
  Sender: FDA-Public Use
  Company Number: 2013AP005442

PATIENT
  Sex: Male

DRUGS (3)
  1. AMLODIPINE BESILATE [Suspect]
  2. IRBESARTAN [Suspect]
  3. NITROGLYCERINE [Suspect]

REACTIONS (2)
  - Hypotension [None]
  - Presyncope [None]
